FAERS Safety Report 17575350 (Version 3)
Quarter: 2020Q2

REPORT INFORMATION
  Report Type: Spontaneous
  Country: US (occurrence: US)
  Receive Date: 20200324
  Receipt Date: 20200430
  Transmission Date: 20200713
  Serious: Yes (Hospitalization)
  Sender: FDA-Public Use
  Company Number: US-HBP-2020US020347

PATIENT
  Age: 74 Year
  Sex: Male

DRUGS (1)
  1. VALCHLOR [Suspect]
     Active Substance: MECHLORETHAMINE
     Indication: CUTANEOUS T-CELL LYMPHOMA
     Dosage: UNK, QD
     Route: 061
     Dates: start: 20200123

REACTIONS (9)
  - Condition aggravated [Recovering/Resolving]
  - Application site ulcer [Recovering/Resolving]
  - Application site irritation [Recovered/Resolved]
  - Application site rash [Recovering/Resolving]
  - Application site inflammation [Recovering/Resolving]
  - Application site erythema [Recovering/Resolving]
  - Intentional dose omission [Recovered/Resolved]
  - Musculoskeletal pain [Unknown]
  - Shoulder operation [Unknown]

NARRATIVE: CASE EVENT DATE: 20200117
